FAERS Safety Report 12234071 (Version 1)
Quarter: 2016Q2

REPORT INFORMATION
  Report Type: Spontaneous
  Country: US (occurrence: US)
  Receive Date: 20160404
  Receipt Date: 20160404
  Transmission Date: 20160815
  Serious: Yes (Other)
  Sender: FDA-Public Use
  Company Number: US-JNJCP-30000329154

PATIENT
  Sex: Female

DRUGS (3)
  1. AVEENO NOS [Suspect]
     Active Substance: DIMETHICONE OR HOMOSALATE\OCTINOXATE\OCTISALATE\TITANIUM DIOXIDE
     Indication: PRODUCT USED FOR UNKNOWN INDICATION
     Route: 061
  2. AVEENO NOS [Suspect]
     Active Substance: DIMETHICONE OR HOMOSALATE\OCTINOXATE\OCTISALATE\TITANIUM DIOXIDE
     Indication: PRODUCT USED FOR UNKNOWN INDICATION
     Route: 061
  3. AVEENO NOURISH PLUS STYLE CURL-DEFINING SPRAY GEL [Suspect]
     Active Substance: COSMETICS
     Indication: PRODUCT USED FOR UNKNOWN INDICATION
     Route: 061

REACTIONS (2)
  - Application site alopecia [Recovering/Resolving]
  - Neoplasm malignant [Unknown]
